APPROVED DRUG PRODUCT: HYDROCHLOROTHIAZIDE W/ RESERPINE
Active Ingredient: HYDROCHLOROTHIAZIDE; RESERPINE
Strength: 25MG;0.125MG
Dosage Form/Route: TABLET;ORAL
Application: A083571 | Product #001
Applicant: IVAX PHARMACEUTICALS INC SUB TEVA PHARMACEUTICALS USA
Approved: Approved Prior to Jan 1, 1982 | RLD: No | RS: No | Type: DISCN